FAERS Safety Report 6108875-5 (Version None)
Quarter: 2009Q1

REPORT INFORMATION
  Report Type: 
  Country: None (occurrence: None)
  Receive Date: 20090310
  Receipt Date: 20090226
  Transmission Date: 20090719
  Serious: Yes (Hospitalization)
  Sender: FDA-Public Use
  Company Number: GB-JNJFOC-20090300553

PATIENT
  Sex: Male
  Weight: 76 kg

DRUGS (11)
  1. REMICADE [Suspect]
     Indication: RHEUMATOID ARTHRITIS
     Route: 042
  2. PREDNISOLONE [Concomitant]
  3. GOLD [Concomitant]
  4. METHOTREXATE [Concomitant]
  5. AMITRIPTYLINE [Concomitant]
  6. CALCICHEW [Concomitant]
  7. CODEINE PHOSPHATE [Concomitant]
  8. DICLOFENAC [Concomitant]
  9. DOTHIEPIN [Concomitant]
  10. EMOLLIENT CREAM [Concomitant]
     Route: 061
  11. RANITIDINE [Concomitant]

REACTIONS (3)
  - ACUTE MYOCARDIAL INFARCTION [None]
  - CORONARY ARTERY DISEASE [None]
  - LOWER RESPIRATORY TRACT INFECTION VIRAL [None]
